FAERS Safety Report 12027989 (Version 1)
Quarter: 2016Q1

REPORT INFORMATION
  Report Type: Report from Study
  Country: US (occurrence: US)
  Receive Date: 20160207
  Receipt Date: 20160207
  Transmission Date: 20160526
  Serious: No
  Sender: FDA-Public Use
  Company Number: US-ABBVIE-15K-163-1492217-00

PATIENT
  Sex: Female
  Weight: 86.26 kg

DRUGS (15)
  1. TRAMADOL. [Concomitant]
     Active Substance: TRAMADOL
     Indication: PAIN
  2. ZANAFLEX [Concomitant]
     Active Substance: TIZANIDINE HYDROCHLORIDE
     Indication: PRODUCT USED FOR UNKNOWN INDICATION
  3. XALATAN [Concomitant]
     Active Substance: LATANOPROST
     Indication: GLAUCOMA
  4. HUMIRA [Suspect]
     Active Substance: ADALIMUMAB
     Indication: RHEUMATOID ARTHRITIS
     Route: 058
     Dates: start: 201312
  5. TOPAMAX [Concomitant]
     Active Substance: TOPIRAMATE
     Indication: BACK PAIN
  6. ZIAC [Concomitant]
     Active Substance: BISOPROLOL FUMARATE\HYDROCHLOROTHIAZIDE
     Indication: HYPERTENSION
  7. CLONAZEPAM. [Concomitant]
     Active Substance: CLONAZEPAM
     Indication: DYSKINESIA
  8. CALCIUM [Concomitant]
     Active Substance: CALCIUM
     Indication: PRODUCT USED FOR UNKNOWN INDICATION
  9. SIMVASTATIN. [Concomitant]
     Active Substance: SIMVASTATIN
     Indication: BLOOD CHOLESTEROL INCREASED
  10. VICTOZA [Concomitant]
     Active Substance: LIRAGLUTIDE
     Indication: DIABETES MELLITUS
  11. THEOPHYLLINE [Concomitant]
     Active Substance: THEOPHYLLINE ANHYDROUS
     Indication: BRONCHITIS CHRONIC
  12. ZOFRAN [Concomitant]
     Active Substance: ONDANSETRON HYDROCHLORIDE
     Indication: NAUSEA
  13. COLACE [Concomitant]
     Active Substance: DOCUSATE SODIUM
     Indication: PRODUCT USED FOR UNKNOWN INDICATION
  14. NEXIUM [Concomitant]
     Active Substance: ESOMEPRAZOLE MAGNESIUM
     Indication: GASTROOESOPHAGEAL REFLUX DISEASE
  15. FISH OIL [Concomitant]
     Active Substance: FISH OIL
     Indication: PRODUCT USED FOR UNKNOWN INDICATION

REACTIONS (3)
  - Constipation [Not Recovered/Not Resolved]
  - Hypophagia [Not Recovered/Not Resolved]
  - Nausea [Not Recovered/Not Resolved]
